FAERS Safety Report 24779093 (Version 1)
Quarter: 2024Q4

REPORT INFORMATION
  Report Type: Spontaneous
  Country: CN (occurrence: CN)
  Receive Date: 20241226
  Receipt Date: 20241226
  Transmission Date: 20250115
  Serious: Yes (Other)
  Sender: ELI LILLY AND COMPANY
  Company Number: CN-ELI_LILLY_AND_COMPANY-CN202412014274

PATIENT

DRUGS (5)
  1. HUMULIN 70/30 [Suspect]
     Active Substance: INSULIN HUMAN
     Indication: Diabetes mellitus
     Dosage: UNK UNK, BID (20-30 UNITS)
     Route: 058
     Dates: start: 2012
  2. HUMULIN 70/30 [Suspect]
     Active Substance: INSULIN HUMAN
     Dosage: UNK UNK, BID (20-30 UNITS)
     Route: 058
     Dates: start: 2012
  3. HUMULIN 70/30 [Suspect]
     Active Substance: INSULIN HUMAN
     Dosage: UNK UNK, BID (20-30 UNITS)
     Route: 058
     Dates: start: 2012
  4. DAPAGLIFLOZIN [Suspect]
     Active Substance: DAPAGLIFLOZIN
     Indication: Product used for unknown indication
     Dosage: UNK UNK, UNKNOWN
     Route: 065
  5. METFORMIN [Concomitant]
     Active Substance: METFORMIN HYDROCHLORIDE
     Indication: Product used for unknown indication
     Dosage: UNK UNK, UNKNOWN
     Route: 065

REACTIONS (3)
  - Cardiac disorder [Unknown]
  - Dysuria [Unknown]
  - Product dose omission issue [Unknown]
